FAERS Safety Report 10268534 (Version 1)
Quarter: 2014Q2

REPORT INFORMATION
  Report Type: Report from Study
  Country: LB (occurrence: LB)
  Receive Date: 20140630
  Receipt Date: 20140630
  Transmission Date: 20141212
  Serious: No
  Sender: FDA-Public Use
  Company Number: PHHY2014LB080289

PATIENT
  Sex: Male

DRUGS (7)
  1. TASIGNA [Suspect]
     Dosage: 2 DF, Q12H
     Route: 048
     Dates: end: 201406
  2. GLIVEC [Suspect]
     Dosage: 400 MG, PER DAY
     Route: 048
     Dates: start: 201406
  3. CO-DIOVAN [Concomitant]
     Dosage: 1 DF, DAILY
     Route: 048
     Dates: start: 2011
  4. LIPANTHYL [Concomitant]
     Dosage: 1 DF, PER DAY
     Route: 048
     Dates: start: 201401
  5. NEXIUM [Concomitant]
     Dosage: 1 DF, PER DAY
     Route: 048
     Dates: start: 201401
  6. DEANXIT [Concomitant]
     Dosage: 1 DF, Q12H
     Route: 048
     Dates: start: 201401
  7. ZYLORIC [Concomitant]
     Dosage: 1 DF, PER DAY
     Route: 048
     Dates: start: 201406

REACTIONS (1)
  - Rash [Not Recovered/Not Resolved]
